FAERS Safety Report 18344483 (Version 6)
Quarter: 2021Q1

REPORT INFORMATION
  Report Type: Spontaneous
  Country: US (occurrence: US)
  Receive Date: 20201005
  Receipt Date: 20210107
  Transmission Date: 20210419
  Serious: No
  Sender: FDA-Public Use
  Company Number: US-PFIZER INC-2018478653

PATIENT
  Age: 37 Year
  Sex: Female

DRUGS (9)
  1. LYRICA [Suspect]
     Active Substance: PREGABALIN
     Dosage: 75 MG, 4X/DAY (TAKE TWO IN THE MORNING AND TWO AT NIGHT)
     Route: 048
  2. LYRICA [Suspect]
     Active Substance: PREGABALIN
     Dosage: 225 MG, DAILY (1 CAPSULE IN MORNING AND 2 CAPSULES AT BEDTIME)
  3. LYRICA [Suspect]
     Active Substance: PREGABALIN
     Dosage: 75 MG, 4X/DAY
     Route: 048
     Dates: start: 20190604
  4. LYRICA [Suspect]
     Active Substance: PREGABALIN
     Dosage: 100 MG, 4X/DAY
     Route: 048
  5. LYRICA [Suspect]
     Active Substance: PREGABALIN
     Indication: PAIN
     Dosage: UNK
     Dates: start: 2011
  6. LYRICA [Suspect]
     Active Substance: PREGABALIN
     Dosage: 75 MG, 4X/DAY
     Route: 048
  7. LYRICA [Suspect]
     Active Substance: PREGABALIN
     Dosage: 75 MG, FIVE TIMES DAILY
     Route: 048
  8. LYRICA [Suspect]
     Active Substance: PREGABALIN
     Dosage: 4 DF, DAILY (SHE TAKES 4 PILLS A DAY)
  9. LYRICA [Suspect]
     Active Substance: PREGABALIN
     Indication: IMPLANT SITE PAIN
     Dosage: 75 MG, 4X/DAY
     Route: 048
     Dates: start: 20190503

REACTIONS (3)
  - Disturbance in attention [Unknown]
  - Oxygen saturation decreased [Unknown]
  - Dyspnoea [Unknown]
